FAERS Safety Report 21653561 (Version 2)
Quarter: 2022Q4

REPORT INFORMATION
  Report Type: Report from Study
  Country: CH (occurrence: CH)
  Receive Date: 20221129
  Receipt Date: 20221212
  Transmission Date: 20230113
  Serious: Yes (Other)
  Sender: FDA-Public Use
  Company Number: CH-ABBVIE-4214969

PATIENT
  Sex: Female
  Weight: 47 kg

DRUGS (3)
  1. CARBIDOPA\LEVODOPA [Suspect]
     Active Substance: CARBIDOPA\LEVODOPA
     Indication: Parkinson^s disease
     Dosage: MD: 3 ML, CRD: 3, CRN: 2.5 ML/H, ED: 1 ML?24H THERAPY
     Route: 050
     Dates: start: 20221011, end: 20221117
  2. CARBIDOPA\LEVODOPA [Suspect]
     Active Substance: CARBIDOPA\LEVODOPA
     Dosage: MD: 3 ML, CRD: 2.8, CRN: 2.5 ML/H, ED: 1 ML
     Route: 050
     Dates: start: 20220601, end: 20221011
  3. CARBIDOPA\LEVODOPA [Suspect]
     Active Substance: CARBIDOPA\LEVODOPA
     Dosage: MD: 0 ML, CRD: 3, CRN: 2.4 ML/H, ED: 1 ML?24H THERAPY
     Route: 050
     Dates: start: 20221117

REACTIONS (6)
  - Malignant melanoma [Not Recovered/Not Resolved]
  - Enteral nutrition [Not Recovered/Not Resolved]
  - Bedridden [Not Recovered/Not Resolved]
  - Hypersomnia [Not Recovered/Not Resolved]
  - Behaviour disorder [Not Recovered/Not Resolved]
  - Dyskinesia [Not Recovered/Not Resolved]
